FAERS Safety Report 23576727 (Version 3)
Quarter: 2024Q2

REPORT INFORMATION
  Report Type: Report from Study
  Country: US (occurrence: US)
  Receive Date: 20240228
  Receipt Date: 20240502
  Transmission Date: 20240715
  Serious: Yes (Other)
  Sender: FDA-Public Use
  Company Number: US-PFIZER INC-PV202400026454

PATIENT
  Age: 65 Year
  Sex: Female

DRUGS (5)
  1. IBRANCE [Suspect]
     Active Substance: PALBOCICLIB
     Indication: Breast cancer female
     Dosage: ONE TIME A DAY FOR 21 DAYS ON 7 DAYS OFF
     Route: 048
     Dates: start: 20240202
  2. IBRANCE [Suspect]
     Active Substance: PALBOCICLIB
     Dosage: ONE TIME A DAY FOR 21 DAYS ON 7 DAYS OFF
     Route: 048
     Dates: end: 20240403
  3. LETROZOLE [Concomitant]
     Active Substance: LETROZOLE
     Dosage: UNK UNK, DAILY
     Dates: start: 20240202
  4. POTASSIUM [Concomitant]
     Active Substance: POTASSIUM
     Indication: Blood potassium decreased
     Dosage: 20 MG, ALTERNATE DAY
  5. POTASSIUM [Concomitant]
     Active Substance: POTASSIUM
     Dosage: 40 MG, DAILY

REACTIONS (11)
  - Tooth extraction [Unknown]
  - Blood potassium decreased [Unknown]
  - Condition aggravated [Unknown]
  - Product dose omission issue [Unknown]
  - Mastication disorder [Recovering/Resolving]
  - Dysphagia [Recovering/Resolving]
  - Post-tussive vomiting [Unknown]
  - Weight decreased [Unknown]
  - Nausea [Recovered/Resolved]
  - Vomiting [Recovered/Resolved]
  - White blood cell count decreased [Not Recovered/Not Resolved]

NARRATIVE: CASE EVENT DATE: 20240101
